FAERS Safety Report 15363955 (Version 1)
Quarter: 2018Q3

REPORT INFORMATION
  Report Type: Spontaneous
  Country: US (occurrence: US)
  Receive Date: 20180831
  Receipt Date: 20180831
  Transmission Date: 20181010
  Serious: No
  Sender: FDA-Public Use
  Company Number: None

PATIENT
  Age: 75 Year
  Sex: Male
  Weight: 68.95 kg

DRUGS (2)
  1. VALSARTAN. [Suspect]
     Active Substance: VALSARTAN
     Indication: HYPERTENSION
     Dosage: ?          QUANTITY:1 DF DOSAGE FORM;?
     Dates: start: 20180226
  2. VALSARTAN. [Suspect]
     Active Substance: VALSARTAN

REACTIONS (9)
  - Memory impairment [None]
  - Dizziness [None]
  - Disorientation [None]
  - Vision blurred [None]
  - Rash [None]
  - Fatigue [None]
  - Confusional state [None]
  - Impaired driving ability [None]
  - Personality change [None]
